FAERS Safety Report 20279144 (Version 2)
Quarter: 2022Q1

REPORT INFORMATION
  Report Type: Spontaneous
  Country: US (occurrence: US)
  Receive Date: 20220103
  Receipt Date: 20220303
  Transmission Date: 20220423
  Serious: No
  Sender: FDA-Public Use
  Company Number: US-BRISTOL-MYERS SQUIBB COMPANY-BMS-2021-144371

PATIENT
  Age: 59 Year
  Sex: Male
  Weight: 104.32 kg

DRUGS (1)
  1. ELIQUIS [Suspect]
     Active Substance: APIXABAN
     Indication: Deep vein thrombosis
     Dosage: UNK, BID
     Route: 048
     Dates: start: 202112

REACTIONS (6)
  - Constipation [Recovering/Resolving]
  - Bowel movement irregularity [Unknown]
  - Alopecia [Unknown]
  - Paraesthesia [Unknown]
  - Asthenia [Unknown]
  - Dizziness [Unknown]

NARRATIVE: CASE EVENT DATE: 20211201
